FAERS Safety Report 6314188-9 (Version None)
Quarter: 2009Q3

REPORT INFORMATION
  Report Type: 
  Country: None (occurrence: None)
  Receive Date: 20090818
  Receipt Date: 20090814
  Transmission Date: 20100115
  Serious: Yes (Life-Threatening, Other)
  Sender: FDA-Public Use
  Company Number: PHEH2009US01018

PATIENT
  Age: 48 Year
  Sex: Male

DRUGS (2)
  1. CLOZARIL [Suspect]
     Dosage: 200 MG IN AM, 200 MG PM, 100 MG HS
     Dates: start: 19910101
  2. CLOZARIL [Suspect]
     Dosage: 500 MG, DAILY

REACTIONS (5)
  - POLLAKIURIA [None]
  - REFUSAL OF TREATMENT BY PATIENT [None]
  - SEDATION [None]
  - SUICIDE ATTEMPT [None]
  - URINARY INCONTINENCE [None]
